FAERS Safety Report 8398279-7 (Version None)
Quarter: 2012Q2

REPORT INFORMATION
  Report Type: 
  Country: None (occurrence: None)
  Receive Date: 20120531
  Receipt Date: 20120529
  Transmission Date: 20120825
  Serious: Yes (Other)
  Sender: FDA-Public Use
  Company Number: US-PFIZER INC-2012129961

PATIENT
  Sex: Male

DRUGS (3)
  1. CELEBREX [Suspect]
     Dosage: 200 MG, 2X/DAY
     Route: 048
     Dates: start: 20111201, end: 20120524
  2. CELEBREX [Suspect]
     Dosage: UNK
     Route: 048
     Dates: end: 20040101
  3. CELEBREX [Suspect]
     Dosage: 200 MG, 1X/DAY
     Route: 048

REACTIONS (9)
  - RESTLESSNESS [None]
  - ANXIETY [None]
  - SLUGGISHNESS [None]
  - FATIGUE [None]
  - INSOMNIA [None]
  - DIZZINESS [None]
  - PAIN [None]
  - ASTHENIA [None]
  - SURGERY [None]
